FAERS Safety Report 9496141 (Version 1)
Quarter: 2013Q3

REPORT INFORMATION
  Report Type: Report from Study
  Country: GR (occurrence: GR)
  Receive Date: 20130904
  Receipt Date: 20130904
  Transmission Date: 20140515
  Serious: Yes (Other)
  Sender: FDA-Public Use
  Company Number: GR-009507513-1309GRC000362

PATIENT
  Sex: 0

DRUGS (8)
  1. ESMERON [Suspect]
     Indication: INDUCTION AND MAINTENANCE OF ANAESTHESIA
     Route: 040
  2. MIDAZOLAM [Suspect]
     Indication: INDUCTION AND MAINTENANCE OF ANAESTHESIA
  3. ETOMIDATE [Suspect]
     Indication: INDUCTION AND MAINTENANCE OF ANAESTHESIA
  4. FENTANYL [Suspect]
     Indication: INDUCTION AND MAINTENANCE OF ANAESTHESIA
  5. SEVOFLURANE [Suspect]
     Indication: INDUCTION AND MAINTENANCE OF ANAESTHESIA
  6. TRANEXAMIC ACID [Suspect]
     Dosage: 10-15 MG/KG BOLUS
     Route: 040
  7. TRANEXAMIC ACID [Suspect]
     Dosage: 1 MG/KG/H, UNTIL 6 HRS AFTER SURGERY
     Route: 041
  8. HEPARIN [Suspect]
     Dosage: 300 IU/KG, UNK
     Route: 042

REACTIONS (2)
  - Surgery [Unknown]
  - Haemorrhage [Unknown]
